FAERS Safety Report 13176800 (Version 3)
Quarter: 2017Q3

REPORT INFORMATION
  Report Type: Report from Study
  Country: None (occurrence: JP)
  Receive Date: 20170201
  Receipt Date: 20170815
  Transmission Date: 20171127
  Serious: Yes (Hospitalization, Other)
  Sender: FDA-Public Use
  Company Number: JP-ABBVIE-14P-087-1198358-00

PATIENT
  Age: 6 Year
  Sex: Female

DRUGS (43)
  1. LIPACREON 300 MG SACHET [Suspect]
     Active Substance: PANCRELIPASE
     Dosage: 2400 MG, QD
     Route: 048
     Dates: start: 20160620
  2. SODIUM CHLORIDE. [Concomitant]
     Active Substance: SODIUM CHLORIDE
     Dosage: UNK
     Route: 055
     Dates: start: 20160308
  3. PANVITAN                           /05664201/ [Concomitant]
     Active Substance: VITAMINS
     Indication: ANGULAR CHEILITIS
     Dosage: 1GRAM
     Route: 048
     Dates: start: 20150203
  4. MUCODYNE [Concomitant]
     Active Substance: CARBOCYSTEINE
     Indication: CYSTIC FIBROSIS PANCREATIC
     Dosage: 4MILLILITER
     Route: 048
     Dates: start: 20110201, end: 20160307
  5. BISOLVON [Concomitant]
     Active Substance: BROMHEXINE HYDROCHLORIDE
     Dosage: UNK
     Route: 048
     Dates: start: 20160308
  6. CEFDITOREN PIVOXIL. [Concomitant]
     Active Substance: CEFDITOREN PIVOXIL
     Indication: PHARYNGITIS
     Dosage: 200MILLIGRAM
     Route: 048
     Dates: start: 20130712, end: 20130715
  7. FOSMICIN                           /00552502/ [Concomitant]
     Active Substance: FOSFOMYCIN CALCIUM
     Dosage: UNK
     Route: 048
     Dates: start: 20160610, end: 20160620
  8. LIPACREON 300 MG SACHET [Suspect]
     Active Substance: PANCRELIPASE
     Dosage: 1200 MG, QD
     Route: 048
     Dates: start: 20130219, end: 20140106
  9. BIOFERMIN                          /01617201/ [Concomitant]
     Active Substance: BACILLUS SUBTILIS\LACTOBACILLUS ACIDOPHILUS\STREPTOCOCCUS FAECAIS
     Indication: CYSTIC FIBROSIS PANCREATIC
     Dosage: 1GRAM
     Route: 048
     Dates: start: 20100209
  10. LAC-B [Concomitant]
     Active Substance: BIFIDOBACTERIUM SPP.
     Indication: CYSTIC FIBROSIS PANCREATIC
     Dosage: 1GRAM
     Route: 048
     Dates: start: 20100209
  11. LIPACREON 300 MG SACHET [Suspect]
     Active Substance: PANCRELIPASE
     Dosage: 750 MG, QD
     Route: 048
     Dates: start: 20110927, end: 20111107
  12. PULMOZYME [Concomitant]
     Active Substance: DORNASE ALFA
     Indication: CYSTIC FIBROSIS PANCREATIC
     Dosage: 2.5MILLIGRAM
     Route: 055
     Dates: start: 20120807
  13. SINGULAIR [Concomitant]
     Active Substance: MONTELUKAST SODIUM
     Indication: CYSTIC FIBROSIS PANCREATIC
     Dosage: 4MILLIGRAM
     Route: 048
     Dates: start: 20080129, end: 20130308
  14. PANVITAN                           /05664201/ [Concomitant]
     Active Substance: VITAMINS
     Indication: CYSTIC FIBROSIS PANCREATIC
     Dosage: .7GRAM
     Route: 048
     Dates: start: 20111010, end: 20150202
  15. CEFOTAXIME [Concomitant]
     Active Substance: CEFOTAXIME SODIUM
     Indication: PNEUMONIA
     Dosage: 1650MILLIGRAM
     Route: 065
     Dates: start: 20130308, end: 20130309
  16. SOLACET D [Concomitant]
     Indication: CYSTIC FIBROSIS PANCREATIC
     Dosage: UNK
     Route: 065
     Dates: start: 20140526, end: 20140526
  17. ANTI TUSSIVE DRUG [Concomitant]
     Indication: UPPER RESPIRATORY TRACT INFLAMMATION
     Dosage: UNK
     Dates: start: 20130724
  18. JUVELA                             /00110502/ [Concomitant]
     Indication: CYSTIC FIBROSIS PANCREATIC
     Dosage: .75GRAM
     Route: 048
     Dates: start: 20111005, end: 20150202
  19. MIYA-BM [Concomitant]
     Active Substance: CLOSTRIDIUM BUTYRICUM SPORES STRAIN M-55
     Indication: CYSTIC FIBROSIS PANCREATIC
     Dosage: 1GRAM
     Route: 048
     Dates: start: 20100309
  20. BISOLVON [Concomitant]
     Active Substance: BROMHEXINE HYDROCHLORIDE
     Indication: CYSTIC FIBROSIS PANCREATIC
     Dosage: 2MILLILITER
     Route: 048
     Dates: start: 20110201, end: 20160307
  21. CEFDITOREN PIVOXIL. [Concomitant]
     Active Substance: CEFDITOREN PIVOXIL
     Indication: BRONCHITIS
     Dosage: 200MILLIGRAM
     Route: 048
     Dates: start: 20140801, end: 20140805
  22. MOHRUS [Concomitant]
     Active Substance: KETOPROFEN
     Indication: MYALGIA
     Dosage: 20MILLIGRAM
     Route: 062
     Dates: start: 20140304, end: 20140305
  23. LIPACREON 300 MG SACHET [Suspect]
     Active Substance: PANCRELIPASE
     Dosage: 1500 MG, QD
     Route: 048
     Dates: start: 20140107, end: 20160619
  24. JUVELA                             /00110502/ [Concomitant]
     Indication: ANGULAR CHEILITIS
     Dosage: .8GRAM
     Route: 048
     Dates: start: 20150203
  25. CEFDITOREN PIVOXIL. [Concomitant]
     Active Substance: CEFDITOREN PIVOXIL
     Indication: UPPER RESPIRATORY TRACT INFLAMMATION
     Dosage: 200MILLIGRAM
     Route: 048
     Dates: start: 20130514, end: 20130519
  26. PENTCILLIN [Concomitant]
     Active Substance: PIPERACILLIN SODIUM
     Indication: PNEUMONIA
     Dosage: 1800MILLIGRAM
     Route: 065
     Dates: start: 20130305, end: 20130308
  27. ACETOKEEP 3G [Concomitant]
     Indication: PRODUCT USED FOR UNKNOWN INDICATION
     Dosage: UNK
     Route: 065
     Dates: start: 20160621, end: 20160624
  28. LIPACREON 300 MG SACHET [Suspect]
     Active Substance: PANCRELIPASE
     Dosage: 900 MG, QD
     Route: 048
     Dates: start: 20111108, end: 20130218
  29. SOLACET D [Concomitant]
     Dosage: UNK
     Route: 065
     Dates: start: 20160621, end: 20160621
  30. ERYTHROCIN                         /00020901/ [Concomitant]
     Active Substance: ERYTHROMYCIN ETHYLSUCCINATE
     Indication: CYSTIC FIBROSIS PANCREATIC
     Dosage: UNK
     Route: 048
     Dates: start: 20130309
  31. MUCOSAL                            /00082801/ [Concomitant]
     Indication: PRODUCT USED FOR UNKNOWN INDICATION
     Dosage: UNK
     Route: 048
     Dates: start: 20160308
  32. MEIACT [Concomitant]
     Active Substance: CEFDITOREN PIVOXIL
     Indication: PRODUCT USED FOR UNKNOWN INDICATION
     Dosage: UNK
     Route: 048
     Dates: start: 20150915, end: 20150920
  33. CEFON                              /00497602/ [Concomitant]
     Indication: PRODUCT USED FOR UNKNOWN INDICATION
     Dosage: UNK
     Route: 065
     Dates: start: 20151212, end: 20151214
  34. LIPACREON 300 MG SACHET [Suspect]
     Active Substance: PANCRELIPASE
     Indication: PANCREATIC FAILURE
     Dosage: 525 MG, QD
     Route: 048
     Dates: start: 20110913, end: 20110926
  35. SODIUM CHLORIDE. [Concomitant]
     Active Substance: SODIUM CHLORIDE
     Indication: CYSTIC FIBROSIS PANCREATIC
     Dosage: 6MILLILITERTID
     Route: 061
     Dates: start: 20100622, end: 20141007
  36. MUCOSOLVAN [Concomitant]
     Active Substance: AMBROXOL HYDROCHLORIDE
     Indication: CYSTIC FIBROSIS PANCREATIC
     Dosage: 3MILLILITER
     Route: 048
     Dates: start: 20110201, end: 20160307
  37. MUCODYNE [Concomitant]
     Active Substance: CARBOCYSTEINE
     Dosage: UNK
     Route: 048
     Dates: start: 20160308
  38. OZEX                               /01070602/ [Concomitant]
     Active Substance: TOSUFLOXACIN TOSYLATE
     Indication: BRONCHITIS
     Dosage: 240MILLIGRAM
     Route: 048
     Dates: start: 20131217, end: 20131221
  39. CEFMETAZOLE SODIUM [Concomitant]
     Active Substance: CEFMETAZOLE SODIUM
     Indication: PRODUCT USED FOR UNKNOWN INDICATION
     Dosage: UNK
     Route: 065
     Dates: start: 20160621
  40. MOVIPREP [Concomitant]
     Active Substance: ASCORBIC ACID\POLYETHYLENE GLYCOL 3350\POTASSIUM CHLORIDE\SODIUM ASCORBATE\SODIUM CHLORIDE\SODIUM SULFATE
     Indication: PRODUCT USED FOR UNKNOWN INDICATION
     Dosage: UNK
     Dates: start: 20160622
  41. FOSMICIN                           /00552502/ [Concomitant]
     Active Substance: FOSFOMYCIN CALCIUM
     Indication: PRODUCT USED FOR UNKNOWN INDICATION
     Dosage: UNK
     Route: 048
     Dates: start: 20160324, end: 20160331
  42. ERYTHROCIN                         /00020904/ [Concomitant]
     Active Substance: ERYTHROMYCIN ETHYLSUCCINATE
     Indication: CYSTIC FIBROSIS PANCREATIC
     Dosage: 300MILLIGRAM
     Route: 048
     Dates: start: 20130309
  43. SOLACET D [Concomitant]
     Dosage: UNK
     Route: 065
     Dates: start: 20160412, end: 20160412

REACTIONS (8)
  - Bronchitis [Recovered/Resolved]
  - Pharyngitis [Recovered/Resolved]
  - Angular cheilitis [Recovered/Resolved]
  - Upper respiratory tract inflammation [Recovered/Resolved]
  - Back pain [Recovered/Resolved]
  - Dehydration [Recovered/Resolved]
  - Myalgia [Recovered/Resolved]
  - Enteritis infectious [Recovered/Resolved]

NARRATIVE: CASE EVENT DATE: 20130514
